FAERS Safety Report 7509531-9 (Version None)
Quarter: 2011Q2

REPORT INFORMATION
  Report Type: 
  Country: None (occurrence: None)
  Receive Date: 20110527
  Receipt Date: 20110415
  Transmission Date: 20111010
  Serious: Yes (Other)
  Sender: FDA-Public Use
  Company Number: US-GILEAD-E2B_00001209

PATIENT
  Sex: Female
  Weight: 102.3 kg

DRUGS (12)
  1. BONIVA [Concomitant]
  2. IBUPROFEN [Concomitant]
  3. OXYGEN [Concomitant]
  4. MUCINEX [Concomitant]
  5. LISINOPRIL AND HYDROCHLOROTHIAZIDE [Concomitant]
  6. ALBUTEROL SULFATE AUTOHALER [Concomitant]
  7. SPIRIVA [Concomitant]
  8. CALCIUM MAGNESIUM [Concomitant]
  9. MULTI-VITAMIN [Concomitant]
  10. AMBRISENTAN [Suspect]
     Indication: PULMONARY ARTERIAL HYPERTENSION
     Dosage: 10MG PER DAY
     Route: 048
     Dates: start: 20110114, end: 20110407
  11. TADALAFIL [Suspect]
     Indication: PULMONARY HYPERTENSION
     Dosage: 40MG PER DAY
     Route: 048
     Dates: start: 20110114, end: 20110407
  12. VITAMIN E [Concomitant]

REACTIONS (6)
  - ALANINE AMINOTRANSFERASE INCREASED [None]
  - DECREASED APPETITE [None]
  - ASPARTATE AMINOTRANSFERASE INCREASED [None]
  - VOMITING [None]
  - TRANSAMINASES INCREASED [None]
  - NAUSEA [None]
